FAERS Safety Report 26047469 (Version 1)
Quarter: 2025Q4

REPORT INFORMATION
  Report Type: Spontaneous
  Country: US (occurrence: US)
  Receive Date: 20251114
  Receipt Date: 20251114
  Transmission Date: 20260118
  Serious: Yes (Other)
  Sender: ROCHE
  Company Number: US-ROCHE-10000427061

PATIENT
  Sex: Female

DRUGS (11)
  1. VABYSMO [Suspect]
     Active Substance: FARICIMAB-SVOA
     Indication: Neovascular age-related macular degeneration
     Route: 050
  2. VABYSMO [Suspect]
     Active Substance: FARICIMAB-SVOA
     Dosage: FREQUENCY EVERY 12-14 WEEKS
     Route: 050
     Dates: start: 202309
  3. VABYSMO [Suspect]
     Active Substance: FARICIMAB-SVOA
  4. VABYSMO [Suspect]
     Active Substance: FARICIMAB-SVOA
  5. VANCOMYCIN [Concomitant]
     Active Substance: VANCOMYCIN
  6. WELLBUTRIN [Concomitant]
     Active Substance: BUPROPION HYDROCHLORIDE
  7. XARELTO [Concomitant]
     Active Substance: RIVAROXABAN
  8. AVASTIN [Concomitant]
     Active Substance: BEVACIZUMAB
  9. EYLEA [Concomitant]
     Active Substance: AFLIBERCEPT
     Dosage: MARCH 2021 (EVERY 6-7 WEEK INJECTION)
  10. CEFTAZIDIME [Concomitant]
     Active Substance: CEFTAZIDIME
  11. POVIDONE-IODINE [Concomitant]
     Active Substance: POVIDONE-IODINE

REACTIONS (8)
  - Open globe injury [Unknown]
  - Hyphaema [Unknown]
  - Retinal occlusive vasculitis [Unknown]
  - Inflammation [Unknown]
  - Ulcerative keratitis [Unknown]
  - Visual impairment [Recovering/Resolving]
  - Pain [Unknown]
  - Corneal perforation [Unknown]
